FAERS Safety Report 24732952 (Version 2)
Quarter: 2024Q4

REPORT INFORMATION
  Report Type: Report from Study
  Country: US (occurrence: US)
  Receive Date: 20241213
  Receipt Date: 20241230
  Transmission Date: 20250114
  Serious: Yes (Hospitalization)
  Sender: EISAI
  Company Number: US-Eisai-EC-2024-180450

PATIENT
  Age: 79 Year
  Sex: Male
  Weight: 50 kg

DRUGS (20)
  1. LENVIMA [Suspect]
     Active Substance: LENVATINIB
     Indication: Hepatocellular carcinoma
     Route: 048
     Dates: start: 20241123, end: 20241130
  2. ACTOS [Concomitant]
     Active Substance: PIOGLITAZONE HYDROCHLORIDE
     Dosage: DOSE AND FREQUENCY UNKNOWN
  3. ASPIRIAN [Concomitant]
     Dosage: DOSE AND FREQUENCY UNKNOWN
  4. COENZYME Q10 [Concomitant]
     Active Substance: DIETARY SUPPLEMENT\UBIDECARENONE
     Dosage: DOSE AND FREQUENCY UNKNOWN
  5. COZAAR [Concomitant]
     Active Substance: LOSARTAN POTASSIUM
     Dosage: DOSE AND FREQUENCY UNKNOWN
  6. VITAMINS [Concomitant]
     Active Substance: VITAMINS
     Dosage: DOSE AND FREQUENCY UNKNOWN
  7. JANUVIA [Concomitant]
     Active Substance: SITAGLIPTIN PHOSPHATE
     Dosage: DOSE AND FREQUENCY UNKNOWN
  8. JARDIANCE [Concomitant]
     Active Substance: EMPAGLIFLOZIN
     Dosage: DOSE AND FREQUENCY UNKNOWN
  9. LIPITOR [Concomitant]
     Active Substance: ATORVASTATIN CALCIUM
     Dosage: DOSE AND FREQUENCY UNKNOWN
  10. MELATONIN [Concomitant]
     Active Substance: MELATONIN
     Dosage: DOSE AND FREQUENCY UNKNOWN
  11. VITAMINS [Concomitant]
     Active Substance: VITAMINS
     Dosage: DOSE AND FREQUENCY UNKNOWN
  12. NORVASC [Concomitant]
     Active Substance: AMLODIPINE BESYLATE
     Dosage: DOSE AND FREQUENCY UNKNOWN
  13. ONDANSETRON [Concomitant]
     Active Substance: ONDANSETRON
     Dosage: DOSE AND FREQUENCY UNKNOWN
  14. POTASSIUM GLUCONATE [Concomitant]
     Active Substance: POTASSIUM GLUCONATE
     Dosage: DOSE AND FREQUENCY UNKNOWN
  15. PRILOSEC OTC [Concomitant]
     Active Substance: OMEPRAZOLE MAGNESIUM
     Dosage: DOSE AND FREQUENCY UNKNOWN
  16. PROSCAR [Concomitant]
     Active Substance: FINASTERIDE
     Dosage: DOSE AND FREQUENCY UNKNOWN
  17. TAMSULOSIN [Concomitant]
     Active Substance: TAMSULOSIN
     Dosage: DOSE AND FREQUENCY UNKNOWN
  18. TOPROL XL [Concomitant]
     Active Substance: METOPROLOL SUCCINATE
     Dosage: DOSE AND FREQUENCY UNKNOWN
  19. VITAMIN C [Concomitant]
     Active Substance: ASCORBIC ACID
     Dosage: DOSE AND FREQUENCY UNKNOWN
  20. VITAMIN D3 [Concomitant]
     Active Substance: CHOLECALCIFEROL
     Dosage: DOSE AND FREQUENCY UNKNOWN

REACTIONS (5)
  - Muscular weakness [Recovering/Resolving]
  - Nausea [Recovered/Resolved]
  - Decreased appetite [Recovering/Resolving]
  - Dehydration [Recovering/Resolving]
  - Asthenia [Recovered/Resolved]

NARRATIVE: CASE EVENT DATE: 20241101
